FAERS Safety Report 21104301 (Version 2)
Quarter: 2022Q3

REPORT INFORMATION
  Report Type: Report from Study
  Country: US (occurrence: US)
  Receive Date: 20220720
  Receipt Date: 20220819
  Transmission Date: 20221027
  Serious: Yes (Other)
  Sender: FDA-Public Use
  Company Number: US-TAKEDA-2022TUS047491

PATIENT
  Sex: Male

DRUGS (3)
  1. MARIBAVIR [Suspect]
     Active Substance: MARIBAVIR
     Indication: Cytomegalovirus infection
     Dosage: UNK
     Route: 065
     Dates: start: 20220604, end: 20220609
  2. MARIBAVIR [Suspect]
     Active Substance: MARIBAVIR
     Dosage: 400 MILLIGRAM, BID
     Route: 048
     Dates: start: 20220701, end: 20220810
  3. ACYCLOVIR [Concomitant]
     Active Substance: ACYCLOVIR
     Dosage: 1 DOSAGE FORM, BID
     Route: 048

REACTIONS (9)
  - Cytomegalovirus infection [Unknown]
  - Dysphonia [Unknown]
  - Cough [Unknown]
  - COVID-19 [Unknown]
  - Aphasia [Unknown]
  - Cognitive disorder [Unknown]
  - Taste disorder [Unknown]
  - Dysgeusia [Unknown]
  - Fatigue [Unknown]
